FAERS Safety Report 16684081 (Version 1)
Quarter: 2019Q3

REPORT INFORMATION
  Report Type: Spontaneous
  Country: US (occurrence: US)
  Receive Date: 20190808
  Receipt Date: 20190808
  Transmission Date: 20191004
  Serious: No
  Sender: FDA-Public Use
  Company Number: US-ASTRAZENECA-2019SF00434

PATIENT
  Age: 24842 Day
  Sex: Female
  Weight: 90.7 kg

DRUGS (2)
  1. BYDUREON BCISE [Suspect]
     Active Substance: EXENATIDE
     Indication: TYPE 2 DIABETES MELLITUS
     Route: 058
     Dates: start: 20190522
  2. VICTOZA [Concomitant]
     Active Substance: LIRAGLUTIDE
     Dates: start: 201903, end: 201904

REACTIONS (2)
  - Dental caries [Not Recovered/Not Resolved]
  - Gingival discolouration [Not Recovered/Not Resolved]

NARRATIVE: CASE EVENT DATE: 20190708
